FAERS Safety Report 13423366 (Version 1)
Quarter: 2017Q2

REPORT INFORMATION
  Report Type: Not Available
  Country: None (occurrence: US)
  Receive Date: 20170410
  Receipt Date: 20170410
  Transmission Date: 20170830
  Serious: No
  Sender: FDA-Public Use
  Company Number: US-AKORN-54583

PATIENT
  Sex: Male

DRUGS (1)
  1. CIPROFLOXACIN 0.3% OPHTHALMIC SOLUTION, USP [Suspect]
     Active Substance: CIPROFLOXACIN

REACTIONS (3)
  - Ocular hyperaemia [Recovered/Resolved]
  - Eye swelling [Recovered/Resolved]
  - Application site erythema [None]
